FAERS Safety Report 9058364 (Version 1)
Quarter: 2013Q1

REPORT INFORMATION
  Report Type: Spontaneous
  Country: US (occurrence: None)
  Receive Date: 20130118
  Receipt Date: 20130118
  Transmission Date: 20140127
  Serious: Yes (Death)
  Sender: FDA-Public Use
  Company Number: 2013SP000292

PATIENT
  Age: 49 Year
  Sex: Male

DRUGS (6)
  1. HALOPERIDOL DECANOATE [Suspect]
  2. ATENOLOL [Suspect]
  3. VALPROIC ACID [Suspect]
  4. CLONAZEPAM [Suspect]
  5. LAMOTRIGINE [Suspect]
  6. OMEPRAZOLE [Suspect]

REACTIONS (2)
  - Completed suicide [None]
  - Toxicity to various agents [None]
